FAERS Safety Report 13557166 (Version 2)
Quarter: 2017Q2

REPORT INFORMATION
  Report Type: Other
  Country: US (occurrence: US)
  Receive Date: 20170518
  Receipt Date: 20170627
  Transmission Date: 20170830
  Serious: Yes (Hospitalization, Other)
  Sender: FDA-Public Use
  Company Number: US-ACORDA-ACO_137642_2017

PATIENT
  Age: 78 Year
  Sex: Female

DRUGS (1)
  1. AMPYRA [Suspect]
     Active Substance: DALFAMPRIDINE
     Indication: GAIT DISTURBANCE
     Dosage: 10 MG, QD
     Route: 048
     Dates: start: 20160412, end: 20170504

REACTIONS (4)
  - Femur fracture [Recovering/Resolving]
  - Fall [Unknown]
  - Condition aggravated [Recovering/Resolving]
  - Diverticulitis oesophageal [Recovering/Resolving]

NARRATIVE: CASE EVENT DATE: 20170330
